FAERS Safety Report 15288457 (Version 3)
Quarter: 2021Q2

REPORT INFORMATION
  Report Type: Spontaneous
  Country: US (occurrence: US)
  Receive Date: 20180817
  Receipt Date: 20210414
  Transmission Date: 20210716
  Serious: No
  Sender: FDA-Public Use
  Company Number: US-EMD SERONO-9039860

PATIENT
  Age: 52 Year
  Sex: Female

DRUGS (5)
  1. REBIF [Suspect]
     Active Substance: INTERFERON BETA-1A
     Indication: MULTIPLE SCLEROSIS
     Dosage: REBIDOSE
     Route: 058
     Dates: start: 20080828, end: 20120325
  2. REBIF [Suspect]
     Active Substance: INTERFERON BETA-1A
     Route: 058
     Dates: start: 20151223, end: 20160806
  3. REBIF [Suspect]
     Active Substance: INTERFERON BETA-1A
     Dosage: THERAPY START DATE: 29?MAR?2021
     Route: 058
  4. REBIF [Suspect]
     Active Substance: INTERFERON BETA-1A
     Dosage: REBIDOSE
     Route: 058
     Dates: start: 20180108, end: 20180709
  5. REBIF [Suspect]
     Active Substance: INTERFERON BETA-1A
     Dosage: REBIDOSE
     Route: 058
     Dates: start: 20170913

REACTIONS (5)
  - Dizziness [Not Recovered/Not Resolved]
  - Sleep disorder [Unknown]
  - Fatigue [Not Recovered/Not Resolved]
  - Pollakiuria [Unknown]
  - Multiple sclerosis [Not Recovered/Not Resolved]

NARRATIVE: CASE EVENT DATE: 202103
